FAERS Safety Report 11963911 (Version 1)
Quarter: 2016Q1

REPORT INFORMATION
  Report Type: Spontaneous
  Country: US (occurrence: None)
  Receive Date: 20160121
  Receipt Date: 20160121
  Transmission Date: 20160526
  Serious: No
  Sender: FDA-Public Use
  Company Number: None

PATIENT
  Age: 31 Year
  Sex: Female
  Weight: 65.77 kg

DRUGS (4)
  1. ALBUTEROL. [Concomitant]
     Active Substance: ALBUTEROL
  2. PHENERGAN [Suspect]
     Active Substance: PROMETHAZINE HYDROCHLORIDE
     Indication: VOMITING
     Dosage: 1/2 TABLET THREE TIMES DAILY TAKEN BY MOUTH
     Dates: start: 20050607, end: 20050611
  3. PROZAC [Concomitant]
     Active Substance: FLUOXETINE HYDROCHLORIDE
  4. PHENERGAN [Suspect]
     Active Substance: PROMETHAZINE HYDROCHLORIDE
     Indication: NAUSEA
     Dosage: 1/2 TABLET THREE TIMES DAILY TAKEN BY MOUTH
     Dates: start: 20050607, end: 20050611

REACTIONS (2)
  - Speech disorder [None]
  - Tic [None]

NARRATIVE: CASE EVENT DATE: 20050511
